FAERS Safety Report 15633902 (Version 1)
Quarter: 2018Q4

REPORT INFORMATION
  Report Type: Spontaneous
  Country: BR (occurrence: BR)
  Receive Date: 20181119
  Receipt Date: 20181119
  Transmission Date: 20190205
  Serious: Yes (Hospitalization, Other)
  Sender: FDA-Public Use
  Company Number: BR-PFIZER INC-2018469155

PATIENT
  Age: 52 Year
  Sex: Female

DRUGS (4)
  1. PACO [Concomitant]
     Active Substance: ACETAMINOPHEN\CODEINE PHOSPHATE
     Indication: PAIN
  2. DOLANTINA [Concomitant]
     Active Substance: MEPERIDINE HYDROCHLORIDE
     Dosage: UNK
  3. MORPHINE [Concomitant]
     Active Substance: MORPHINE
  4. LYRICA [Suspect]
     Active Substance: PREGABALIN
     Dosage: UNK
     Dates: start: 2016, end: 2018

REACTIONS (9)
  - Mass [Unknown]
  - Euphoric mood [Unknown]
  - Muscular weakness [Unknown]
  - Pain [Unknown]
  - Arthralgia [Unknown]
  - Spinal pain [Unknown]
  - Wrist deformity [Unknown]
  - Gastric ulcer [Unknown]
  - Elbow deformity [Unknown]
